FAERS Safety Report 7483446-7 (Version None)
Quarter: 2011Q2

REPORT INFORMATION
  Report Type: 
  Country: None (occurrence: None)
  Receive Date: 20110517
  Receipt Date: 20110505
  Transmission Date: 20111010
  Serious: Yes (Other)
  Sender: FDA-Public Use
  Company Number: CN-JNJFOC-20110506215

PATIENT

DRUGS (1)
  1. ITRACONAZOLE [Suspect]
     Indication: SYSTEMIC MYCOSIS
     Route: 042

REACTIONS (1)
  - ARRHYTHMIA [None]
